FAERS Safety Report 16871673 (Version 3)
Quarter: 2020Q4

REPORT INFORMATION
  Report Type: Spontaneous
  Country: US (occurrence: US)
  Receive Date: 20191001
  Receipt Date: 20201118
  Transmission Date: 20210113
  Serious: Yes (Other)
  Sender: FDA-Public Use
  Company Number: US-HTU-2019US018287

PATIENT
  Sex: Female

DRUGS (11)
  1. VALCHLOR [Suspect]
     Active Substance: MECHLORETHAMINE
     Indication: CUTANEOUS T-CELL LYMPHOMA
     Dosage: UNK
     Route: 061
     Dates: start: 201608
  2. CALTRATE 600+D [Concomitant]
     Dosage: UNK, UNKNOWN
  3. VALCHLOR [Suspect]
     Active Substance: MECHLORETHAMINE
     Dosage: UNK, 4/WEEK
     Route: 061
  4. CITRUCEL [Concomitant]
     Active Substance: METHYLCELLULOSE (4000 MPA.S)
     Dosage: UNK, UNKNOWN
  5. MULTIVITAMIN                       /00097801/ [Concomitant]
     Active Substance: VITAMINS
     Dosage: UNK, UNKNOWN
  6. CLOBETASOL [Concomitant]
     Active Substance: CLOBETASOL
     Dosage: UNK, UNKNOWN
  7. LISINOPRIL. [Concomitant]
     Active Substance: LISINOPRIL
     Dosage: UNK, UNKNOWN
  8. OCUVITE [Concomitant]
     Active Substance: VITAMINS
     Dosage: UNK, UNKNOWN
  9. ECOTRIN [Concomitant]
     Active Substance: ASPIRIN
     Dosage: UNK, UNKNOWN
  10. ESTRACE [Concomitant]
     Active Substance: ESTRADIOL
     Dosage: UNK, UNKNOWN
  11. FISH OIL [Concomitant]
     Active Substance: FISH OIL
     Dosage: UNK, UNKNOWN

REACTIONS (6)
  - Off label use [Unknown]
  - Glaucoma surgery [Unknown]
  - Retinal disorder [Unknown]
  - Glaucoma [Unknown]
  - Eye disorder [Unknown]
  - Cataract [Unknown]
